FAERS Safety Report 21309825 (Version 1)
Quarter: 2022Q3

REPORT INFORMATION
  Report Type: Spontaneous
  Country: US (occurrence: None)
  Receive Date: 20220908
  Receipt Date: 20220908
  Transmission Date: 20221027
  Serious: No
  Sender: FDA-Public Use
  Company Number: None

PATIENT
  Sex: Female

DRUGS (1)
  1. BEXAROTENE [Suspect]
     Active Substance: BEXAROTENE
     Dosage: FREQUENCY : DAILY;?
     Route: 048

REACTIONS (7)
  - Bradyphrenia [None]
  - Pruritus [None]
  - Hypoacusis [None]
  - Neuropathy peripheral [None]
  - Upper-airway cough syndrome [None]
  - Insomnia [None]
  - Multiple allergies [None]
